FAERS Safety Report 15225596 (Version 1)
Quarter: 2018Q3

REPORT INFORMATION
  Report Type: Spontaneous
  Country: US (occurrence: US)
  Receive Date: 20180801
  Receipt Date: 20180801
  Transmission Date: 20181010
  Serious: Yes (Other)
  Sender: FDA-Public Use
  Company Number: US-CIPLA LTD.-2018US20451

PATIENT

DRUGS (4)
  1. VALPROATE [Suspect]
     Active Substance: VALPROIC ACID
     Indication: GENERALISED TONIC-CLONIC SEIZURE
  2. LAMOTRIGINE. [Suspect]
     Active Substance: LAMOTRIGINE
     Indication: EYELID MYOCLONUS
     Dosage: 25 MG, BID ({ 1 MG/KG/DAY)
     Route: 065
  3. LAMOTRIGINE. [Suspect]
     Active Substance: LAMOTRIGINE
     Indication: GENERALISED TONIC-CLONIC SEIZURE
  4. VALPROATE [Suspect]
     Active Substance: VALPROIC ACID
     Indication: EYELID MYOCLONUS
     Dosage: 250 MG, BID (11 MG/KG/DAY)
     Route: 065

REACTIONS (1)
  - Treatment failure [Unknown]
